FAERS Safety Report 5368106-0 (Version None)
Quarter: 2007Q2

REPORT INFORMATION
  Report Type: 
  Country: None (occurrence: None)
  Receive Date: 20070622
  Receipt Date: 20070614
  Transmission Date: 20071010
  Serious: Yes (Hospitalization)
  Sender: FDA-Public Use
  Company Number: PT-PFIZER INC-2007049969

PATIENT
  Sex: Female

DRUGS (9)
  1. ZARATOR [Suspect]
     Indication: SPINAL CORD DISORDER
     Route: 048
     Dates: start: 20061101, end: 20070101
  2. LYRICA [Suspect]
     Indication: SPINAL CORD DISORDER
     Route: 048
     Dates: start: 20061101, end: 20070101
  3. ARTHROTEC [Suspect]
     Indication: SPINAL CORD DISORDER
     Dosage: TEXT:75MG + 0.2MG
     Route: 048
     Dates: start: 20061101, end: 20070101
  4. VIARTRIL S [Suspect]
     Indication: SPINAL CORD DISORDER
     Route: 048
     Dates: start: 20061101, end: 20070101
  5. SIRDALUD [Suspect]
     Indication: SPINAL CORD DISORDER
     Route: 048
     Dates: start: 20061101, end: 20070101
  6. OMEPRAZOLE [Suspect]
     Indication: SPINAL CORD DISORDER
     Route: 048
     Dates: start: 20061101, end: 20070101
  7. OMEPRAZOLE [Suspect]
  8. AMOXICILLIN [Suspect]
     Indication: TOOTH DISORDER
     Dates: start: 20070101, end: 20070101
  9. TRISEQUENS [Concomitant]

REACTIONS (2)
  - HEPATITIS TOXIC [None]
  - PSEUDOMEMBRANOUS COLITIS [None]
